FAERS Safety Report 8847097 (Version 2)
Quarter: 2012Q4

REPORT INFORMATION
  Report Type: 
  Country: GT (occurrence: GT)
  Receive Date: 20121018
  Receipt Date: 20121019
  Transmission Date: 20130627
  Serious: Yes (Death, Hospitalization)
  Sender: FDA-Public Use
  Company Number: PHHY2012GT092119

PATIENT
  Age: 65 None
  Sex: Female

DRUGS (3)
  1. GLIVEC [Suspect]
     Indication: CHRONIC MYELOID LEUKAEMIA
     Dosage: 400 mg, UNK
     Route: 048
     Dates: start: 20060911
  2. GLIVEC [Suspect]
     Dosage: 600 mg per day
     Route: 048
  3. GLIVEC [Suspect]
     Dosage: 400 mg per day
     Route: 048

REACTIONS (6)
  - Respiratory failure [Fatal]
  - Cardiac arrest [Fatal]
  - Chronic myeloid leukaemia [Fatal]
  - Thrombocytosis [Unknown]
  - Drug resistance [Unknown]
  - Drug ineffective [Unknown]
